FAERS Safety Report 4904576-7 (Version None)
Quarter: 2006Q1

REPORT INFORMATION
  Report Type: 
  Country: None (occurrence: None)
  Receive Date: 20060208
  Receipt Date: 20060118
  Transmission Date: 20060701
  Serious: Yes (Hospitalization)
  Sender: FDA-Public Use
  Company Number: GB-ROCHE-432684

PATIENT
  Age: 39 Year
  Sex: Female

DRUGS (8)
  1. MYCOPHENOLATE MOFETIL [Suspect]
     Route: 048
     Dates: start: 20060115, end: 20060123
  2. MYCOPHENOLATE MOFETIL [Suspect]
     Route: 042
     Dates: start: 20060109, end: 20060114
  3. DACLIZUMAB [Suspect]
     Route: 042
  4. DACLIZUMAB [Suspect]
     Route: 042
  5. TACROLIMUS [Suspect]
     Route: 048
     Dates: start: 20060114, end: 20060115
  6. METHYLPREDNISOLONE [Suspect]
     Route: 065
     Dates: start: 20060109, end: 20060114
  7. METHYLPREDNISOLONE [Suspect]
     Route: 065
     Dates: start: 20060120, end: 20060123
  8. PREDNISOLONE [Suspect]
     Route: 065
     Dates: start: 20060115, end: 20060119

REACTIONS (2)
  - AGITATION [None]
  - NEUROLOGICAL SYMPTOM [None]
